FAERS Safety Report 20890784 (Version 1)
Quarter: 2022Q2

REPORT INFORMATION
  Report Type: Spontaneous
  Country: CN (occurrence: CN)
  Receive Date: 20220530
  Receipt Date: 20220530
  Transmission Date: 20220721
  Serious: Yes (Disabling)
  Sender: FDA-Public Use
  Company Number: CN-NOVARTISPH-NVSC2022CN123079

PATIENT
  Age: 29 Year
  Sex: Male
  Weight: 55 kg

DRUGS (3)
  1. DICLOFENAC [Suspect]
     Active Substance: DICLOFENAC
     Indication: Undifferentiated connective tissue disease
     Dosage: 2 DOSAGE FORM, QD
     Route: 048
     Dates: start: 20220403, end: 20220518
  2. THALIDOMIDE [Suspect]
     Active Substance: THALIDOMIDE
     Indication: Undifferentiated connective tissue disease
     Dosage: 1 DOSAGE FORM, QD (EVERY NIGHT)
     Route: 048
     Dates: start: 20220416, end: 20220518
  3. HYDROXYCHLOROQUINE [Suspect]
     Active Substance: HYDROXYCHLOROQUINE
     Indication: Undifferentiated connective tissue disease
     Dosage: 2 DOSAGE FORM, QD
     Route: 048
     Dates: start: 20220416, end: 20220518

REACTIONS (1)
  - Hepatic function abnormal [Recovering/Resolving]

NARRATIVE: CASE EVENT DATE: 20220518
